FAERS Safety Report 4661513-0 (Version None)
Quarter: 2005Q2

REPORT INFORMATION
  Report Type: 
  Country: None (occurrence: None)
  Receive Date: 20050511
  Receipt Date: 20050511
  Transmission Date: 20051028
  Serious: Yes (Hospitalization)
  Sender: FDA-Public Use
  Company Number: None

PATIENT
  Age: 83 Year
  Sex: Male
  Weight: 72 kg

DRUGS (1)
  1. WARFARIN [Suspect]
     Indication: ATRIAL FIBRILLATION
     Dosage: 4MG/6MG    MWFS/OTHER DAY  ORAL
     Route: 048

REACTIONS (10)
  - ANAEMIA [None]
  - ARTHRALGIA [None]
  - COMPARTMENT SYNDROME [None]
  - FALL [None]
  - HAEMATOCHEZIA [None]
  - HEAD INJURY [None]
  - INTERNATIONAL NORMALISED RATIO INCREASED [None]
  - JOINT INJURY [None]
  - PAIN IN EXTREMITY [None]
  - SWELLING [None]
